FAERS Safety Report 7671385-8 (Version None)
Quarter: 2011Q3

REPORT INFORMATION
  Report Type: 
  Country: None (occurrence: None)
  Receive Date: 20110809
  Receipt Date: 20110805
  Transmission Date: 20111222
  Serious: Yes (Other)
  Sender: FDA-Public Use
  Company Number: US-PFIZER INC-2011180037

PATIENT
  Sex: Female

DRUGS (1)
  1. LYRICA [Suspect]
     Indication: POST HERPETIC NEURALGIA
     Dosage: 600 MG, UNK

REACTIONS (3)
  - ROAD TRAFFIC ACCIDENT [None]
  - FEELING ABNORMAL [None]
  - IMPAIRED DRIVING ABILITY [None]
